FAERS Safety Report 9638098 (Version 1)
Quarter: 2013Q4

REPORT INFORMATION
  Report Type: Spontaneous
  Country: US (occurrence: None)
  Receive Date: 20131021
  Receipt Date: 20131021
  Transmission Date: 20140711
  Serious: Yes (Hospitalization)
  Sender: FDA-Public Use
  Company Number: None

PATIENT
  Age: 64 Year
  Sex: Female
  Weight: 102 kg

DRUGS (5)
  1. ROCURONIUM BROMIDE [Suspect]
     Indication: LUMBAR SPINAL STENOSIS
     Dates: start: 20131016, end: 20131016
  2. ROCURONIUM BROMIDE [Suspect]
     Indication: SURGERY
     Dates: start: 20131016, end: 20131016
  3. ROCURONIUM BROMIDE [Suspect]
     Indication: NEUROMUSCULAR BLOCKING THERAPY
     Dates: start: 20131016, end: 20131016
  4. CEFAZOLIN [Concomitant]
  5. VANCOMYCIN [Concomitant]

REACTIONS (2)
  - Respiratory depression [None]
  - Neuromuscular block prolonged [None]
